FAERS Safety Report 16751619 (Version 1)
Quarter: 2019Q3

REPORT INFORMATION
  Report Type: Spontaneous
  Country: US (occurrence: US)
  Receive Date: 20190828
  Receipt Date: 20190828
  Transmission Date: 20191005
  Serious: Yes (Other)
  Sender: FDA-Public Use
  Company Number: US-PFIZER INC-2019321542

PATIENT
  Age: 4 Year
  Sex: Female

DRUGS (1)
  1. GENOTROPIN [Suspect]
     Active Substance: SOMATROPIN
     Indication: SILVER-RUSSELL SYNDROME
     Dosage: 0.4 MG, DAILY
     Dates: start: 20190815

REACTIONS (4)
  - Intentional self-injury [Unknown]
  - Anger [Unknown]
  - Product use in unapproved indication [Unknown]
  - Off label use [Unknown]
